FAERS Safety Report 10139882 (Version 1)
Quarter: 2014Q2

REPORT INFORMATION
  Report Type: Spontaneous
  Country: US (occurrence: US)
  Receive Date: 20140429
  Receipt Date: 20140429
  Transmission Date: 20141212
  Serious: No
  Sender: FDA-Public Use
  Company Number: US-B.I. PHARMACEUTICALS,INC./RIDGEFIELD-2014-BI-17494BP

PATIENT
  Sex: Female

DRUGS (2)
  1. MICARDIS HCT [Suspect]
     Indication: PRODUCT USED FOR UNKNOWN INDICATION
     Dosage: 80MG/25 MG
     Route: 048
  2. MICARDIS HCT [Suspect]
     Dosage: 40MG/12.5MG
     Route: 065
     Dates: start: 201311

REACTIONS (1)
  - Hypertension [Unknown]
